FAERS Safety Report 4333656-2 (Version None)
Quarter: 2004Q2

REPORT INFORMATION
  Report Type: 
  Country: None (occurrence: None)
  Receive Date: 20040406
  Receipt Date: 20040406
  Transmission Date: 20050107
  Serious: Yes (Hospitalization)
  Sender: FDA-Public Use
  Company Number: None

PATIENT
  Sex: Female
  Weight: 59.4212 kg

DRUGS (6)
  1. GEMZAR [Suspect]
     Indication: BREAST CANCER METASTATIC
     Dosage: 1000 MG/M2 DAY 1, 8 Q21 DAYS IV
     Route: 042
     Dates: start: 20040101, end: 20040323
  2. VINORELBINE TARTRATE [Suspect]
     Indication: BREAST CANCER METASTATIC
     Dosage: 25 MG/M2 DAY 1, 8 Q 21 DAYS IV
     Route: 042
     Dates: start: 20040101, end: 20040323
  3. COUMADIN [Concomitant]
  4. COMPAZINE [Concomitant]
  5. FEMARA [Concomitant]
  6. ARANESP [Concomitant]

REACTIONS (6)
  - ASTHENIA [None]
  - BEDRIDDEN [None]
  - DECREASED APPETITE [None]
  - DEHYDRATION [None]
  - PLEURAL EFFUSION [None]
  - PNEUMONIA [None]
